FAERS Safety Report 7818518-8 (Version None)
Quarter: 2011Q4

REPORT INFORMATION
  Report Type: 
  Country: None (occurrence: None)
  Receive Date: 20111017
  Receipt Date: 20111012
  Transmission Date: 20120403
  Serious: Yes (Other)
  Sender: FDA-Public Use
  Company Number: IE-MERCK-1110GBR00048

PATIENT
  Age: 28 Year
  Sex: Male

DRUGS (1)
  1. PROSCAR [Suspect]
     Indication: ALOPECIA
     Route: 048
     Dates: start: 20070101, end: 20090101

REACTIONS (2)
  - OFF LABEL USE [None]
  - PANCREATITIS CHRONIC [None]
